FAERS Safety Report 21718514 (Version 1)
Quarter: 2022Q4

REPORT INFORMATION
  Report Type: Spontaneous
  Country: ZW (occurrence: ZW)
  Receive Date: 20221212
  Receipt Date: 20221212
  Transmission Date: 20230112
  Serious: Yes (Other)
  Sender: FDA-Public Use
  Company Number: ZW-STRIDES ARCOLAB LIMITED-2022SP016605

PATIENT
  Age: 39 Year
  Sex: Female

DRUGS (6)
  1. TENOFOVIR DISOPROXIL FUMARATE [Suspect]
     Active Substance: TENOFOVIR DISOPROXIL FUMARATE
     Indication: Product used for unknown indication
     Dosage: UNK, (TOTAL DAILY DOSE: 300) (ONE COURSE)  (STARTED AT 0 WEEKS AND STOPPED AT 15 WEEKS)
     Route: 048
  2. LAMIVUDINE [Suspect]
     Active Substance: LAMIVUDINE
     Indication: Product used for unknown indication
     Dosage: UNK, (TOTAL DAILY DOSE: 300) (ONE COURSE)  (STARTED AT 0 WEEKS AND STOPPED AT 15 WEEKS)
     Route: 048
  3. DOLUTEGRAVIR [Suspect]
     Active Substance: DOLUTEGRAVIR
     Indication: Product used for unknown indication
     Dosage: UNK, (TOTAL DAILY DOSE: 50) (ONE COURSE)  (STARTED AT 0 WEEKS AND STOPPED AT 15 WEEKS)
     Route: 048
  4. DARUNAVIR [Suspect]
     Active Substance: DARUNAVIR
     Indication: Product used for unknown indication
     Dosage: UNK, (TOTAL DAILY DOSE: 800) (ONE COURSE)
     Route: 048
  5. LAMIVUDINE\TENOFOVIR DISOPROXIL FUMARATE [Suspect]
     Active Substance: LAMIVUDINE\TENOFOVIR DISOPROXIL FUMARATE
     Indication: Product used for unknown indication
     Dosage: UNK, (TOTAL DAILY DOSE 2) (ONE COURSE)
     Route: 048
  6. RITONAVIR [Suspect]
     Active Substance: RITONAVIR
     Indication: Product used for unknown indication
     Dosage: UNK, (TOTAL DAILY DOSE: 100) (ONE COURSE)
     Route: 048

REACTIONS (2)
  - Premature delivery [Unknown]
  - Maternal exposure during pregnancy [Unknown]
